FAERS Safety Report 12914729 (Version 1)
Quarter: 2016Q4

REPORT INFORMATION
  Report Type: Spontaneous
  Country: US (occurrence: US)
  Receive Date: 20161106
  Receipt Date: 20161106
  Transmission Date: 20170207
  Serious: No
  Sender: FDA-Public Use
  Company Number: US-RELYPSA-RLY2016002037

PATIENT
  Age: 89 Year
  Sex: Female

DRUGS (14)
  1. ASPIRIN                            /00002701/ [Concomitant]
     Active Substance: ASPIRIN
  2. VELTASSA [Suspect]
     Active Substance: PATIROMER
     Dosage: 8.4 G, QD
     Route: 048
     Dates: start: 2016
  3. ALENDRONATE SODIUM. [Concomitant]
     Active Substance: ALENDRONATE SODIUM
  4. NOVOLIN [Concomitant]
     Active Substance: INSULIN HUMAN
  5. SIMVASTATIN. [Concomitant]
     Active Substance: SIMVASTATIN
  6. OYSCO [Concomitant]
  7. VELTASSA [Suspect]
     Active Substance: PATIROMER
     Indication: HYPERKALAEMIA
     Dosage: 8.4 G, QOD
     Route: 048
     Dates: end: 2016
  8. ALLOPURINOL. [Concomitant]
     Active Substance: ALLOPURINOL
  9. VITAMIN D3 [Concomitant]
     Active Substance: CHOLECALCIFEROL
  10. PANTOPRAZOLE SODIUM. [Concomitant]
     Active Substance: PANTOPRAZOLE SODIUM
  11. LISINOPRIL. [Concomitant]
     Active Substance: LISINOPRIL
  12. FUROSEMIDE. [Concomitant]
     Active Substance: FUROSEMIDE
  13. KIONEX [Concomitant]
     Active Substance: SODIUM POLYSTYRENE SULFONATE
  14. NIFEDIPINE. [Concomitant]
     Active Substance: NIFEDIPINE

REACTIONS (2)
  - Blood potassium increased [Unknown]
  - Drug administration error [Unknown]

NARRATIVE: CASE EVENT DATE: 20160720
